FAERS Safety Report 7587289-5 (Version None)
Quarter: 2011Q3

REPORT INFORMATION
  Report Type: 
  Country: None (occurrence: None)
  Receive Date: 20110701
  Receipt Date: 20110628
  Transmission Date: 20111222
  Serious: Yes (Life-Threatening)
  Sender: FDA-Public Use
  Company Number: US-AMGEN-USACT2011032796

PATIENT
  Age: 51 Year
  Sex: Female

DRUGS (7)
  1. FILGRASTIM [Suspect]
     Indication: BREAST CANCER
     Dosage: UNK
     Route: 058
     Dates: start: 20100707
  2. UNSPECIFIED HERBAL [Concomitant]
  3. BEVACIZUMAB [Concomitant]
     Indication: BREAST CANCER
     Dosage: UNK UNK, Q2WK
     Route: 042
     Dates: start: 20100707
  4. DOXORUBICIN HCL [Concomitant]
     Indication: BREAST CANCER
     Dosage: 60 MG/M2, UNK
     Route: 042
     Dates: start: 20100707
  5. PEGFILGRASTIM [Suspect]
     Indication: BREAST CANCER
     Dosage: 6 MG, UNK
     Route: 058
     Dates: start: 20100707
  6. CYCLOPHOSPHAMIDE [Concomitant]
     Dosage: 600 MG/M2, UNK
     Route: 042
     Dates: start: 20100707
  7. PACLITAXEL [Concomitant]
     Dosage: 80 MG/M2, UNK
     Route: 042

REACTIONS (2)
  - ASPARTATE AMINOTRANSFERASE INCREASED [None]
  - ALANINE AMINOTRANSFERASE INCREASED [None]
